FAERS Safety Report 10071696 (Version 2)
Quarter: 2014Q2

REPORT INFORMATION
  Report Type: Spontaneous
  Country: US (occurrence: US)
  Receive Date: 20140411
  Receipt Date: 20140501
  Transmission Date: 20141212
  Serious: Yes (Other)
  Sender: FDA-Public Use
  Company Number: US-UCBSA-117103

PATIENT
  Sex: Female
  Weight: 52.16 kg

DRUGS (3)
  1. CIMZIA [Suspect]
     Indication: CROHN^S DISEASE
     Dates: start: 2012, end: 201304
  2. CIMZIA [Suspect]
     Indication: CROHN^S DISEASE
     Route: 058
     Dates: start: 201312, end: 201403
  3. MERCAPTOPURINE [Concomitant]
     Indication: CROHN^S DISEASE
     Dosage: 50 MG ONE AND A HALF TABLET
     Dates: start: 201404

REACTIONS (4)
  - Colon operation [Not Recovered/Not Resolved]
  - Blood iron decreased [Recovering/Resolving]
  - Drug ineffective [Not Recovered/Not Resolved]
  - Pregnancy [Recovered/Resolved]
